FAERS Safety Report 9902702 (Version 1)
Quarter: 2014Q1

REPORT INFORMATION
  Report Type: Report from Study
  Country: CA (occurrence: CA)
  Receive Date: 20140217
  Receipt Date: 20140217
  Transmission Date: 20141002
  Serious: Yes (Other)
  Sender: FDA-Public Use
  Company Number: CA-JNJFOC-20140207831

PATIENT
  Age: 71 Year
  Sex: Male
  Weight: 82 kg

DRUGS (2)
  1. REMICADE [Suspect]
     Indication: COLITIS ULCERATIVE
     Dosage: 1ST LOADING DOSE.
     Route: 042
     Dates: start: 20140130
  2. PREDNISONE [Concomitant]
     Route: 048

REACTIONS (1)
  - Ophthalmic herpes simplex [Unknown]
